FAERS Safety Report 9314024 (Version 1)
Quarter: 2013Q2

REPORT INFORMATION
  Report Type: Spontaneous
  Country: US (occurrence: None)
  Receive Date: 20130524
  Receipt Date: 20130524
  Transmission Date: 20140414
  Serious: No
  Sender: FDA-Public Use
  Company Number: None

PATIENT
  Age: 57 Year
  Sex: Female
  Weight: 61.24 kg

DRUGS (1)
  1. NYSTATIN [Suspect]
     Dosage: 1 TSP, 4 TIMES/DAY
     Dates: start: 20130504, end: 20130522

REACTIONS (3)
  - Initial insomnia [None]
  - Middle insomnia [None]
  - Nervousness [None]
